FAERS Safety Report 4872682-1 (Version None)
Quarter: 2006Q1

REPORT INFORMATION
  Report Type: 
  Country: None (occurrence: None)
  Receive Date: 20060103
  Receipt Date: 20051219
  Transmission Date: 20060701
  Serious: Yes (Hospitalization, Other)
  Sender: FDA-Public Use
  Company Number: US200512001102

PATIENT
  Age: 72 Year
  Sex: Female

DRUGS (5)
  1. FORTEO [Suspect]
     Dosage: 20 UG
     Dates: start: 20051202
  2. SIMVASTATIN [Concomitant]
  3. ATENOLOL [Concomitant]
  4. COZAAR [Concomitant]
  5. MIACALCIN [Concomitant]

REACTIONS (3)
  - CHEST DISCOMFORT [None]
  - DYSPNOEA [None]
  - GASTRIC ULCER [None]
